FAERS Safety Report 18312250 (Version 1)
Quarter: 2020Q3

REPORT INFORMATION
  Report Type: Spontaneous
  Country: PL (occurrence: PL)
  Receive Date: 20200925
  Receipt Date: 20200925
  Transmission Date: 20201103
  Serious: Yes (Hospitalization, Other)
  Sender: FDA-Public Use
  Company Number: PL-MICRO LABS LIMITED-ML2020-02834

PATIENT

DRUGS (4)
  1. EPLERENONE. [Suspect]
     Active Substance: EPLERENONE
     Indication: CHORIORETINOPATHY
  2. ATORVASTATIN [Suspect]
     Active Substance: ATORVASTATIN
     Indication: HYPERCHOLESTEROLAEMIA
  3. AMLODIPINE [Suspect]
     Active Substance: AMLODIPINE BESYLATE
  4. DOXAZOSIN MESILAS [Suspect]
     Active Substance: DOXAZOSIN MESYLATE

REACTIONS (2)
  - Drug interaction [Unknown]
  - Chorioretinopathy [Recovering/Resolving]
